FAERS Safety Report 19587478 (Version 1)
Quarter: 2021Q3

REPORT INFORMATION
  Report Type: Spontaneous
  Country: JP (occurrence: JP)
  Receive Date: 20210721
  Receipt Date: 20210721
  Transmission Date: 20211014
  Serious: Yes (Other)
  Sender: FDA-Public Use
  Company Number: JP-PFIZER INC-2021881121

PATIENT
  Age: 6 Decade
  Sex: Male

DRUGS (8)
  1. OXALIPLATIN. [Suspect]
     Active Substance: OXALIPLATIN
     Dosage: UNK UNK, CYCLIC (7 COURSES)
  2. BEVACIZUMAB. [Concomitant]
     Active Substance: BEVACIZUMAB
     Dosage: UNK UNK, CYCLIC (7 COURSES)
  3. OXALIPLATIN. [Suspect]
     Active Substance: OXALIPLATIN
     Dosage: UNK UNK, CYCLIC (8 COURSES AS POSTOPERATIVE CHEMOTHERAPY)
  4. CAPECITABINE. [Concomitant]
     Active Substance: CAPECITABINE
     Dosage: UNK UNK, CYCLIC (7 COURSES)
  5. BEVACIZUMAB. [Concomitant]
     Active Substance: BEVACIZUMAB
     Indication: COLON CANCER
     Dosage: UNK, CYCLIC (XELOX + BEV4 COURSE)
  6. OXALIPLATIN. [Suspect]
     Active Substance: OXALIPLATIN
     Indication: COLON CANCER
     Dosage: UNK
  7. CAPECITABINE. [Concomitant]
     Active Substance: CAPECITABINE
     Indication: COLON CANCER
     Dosage: UNK
  8. CAPECITABINE. [Concomitant]
     Active Substance: CAPECITABINE
     Dosage: UNK UNK, CYCLIC (8 COURSES AS POSTOPERATIVE CHEMOTHERAPY)

REACTIONS (3)
  - Gastric varices haemorrhage [Recovered/Resolved]
  - Portal hypertension [Recovered/Resolved]
  - Venoocclusive liver disease [Recovered/Resolved]
